FAERS Safety Report 7288789-8 (Version None)
Quarter: 2011Q1

REPORT INFORMATION
  Report Type: 
  Country: None (occurrence: None)
  Receive Date: 20110201
  Receipt Date: 20110120
  Transmission Date: 20110831
  Serious: Yes (Hospitalization)
  Sender: FDA-Public Use
  Company Number: 2011SP002865

PATIENT
  Age: 29 Year
  Sex: Female

DRUGS (4)
  1. GONAL-F [Suspect]
     Indication: PRODUCT USED FOR UNKNOWN INDICATION
  2. GONADORELIN INJ [Concomitant]
     Indication: PRODUCT USED FOR UNKNOWN INDICATION
  3. GONADOTROPHINE CHORINIQUE ENDO (CHORIONIC GONADOTROPHIN) [Suspect]
     Indication: PRODUCT USED FOR UNKNOWN INDICATION
  4. LAMICTAL [Concomitant]

REACTIONS (6)
  - DECREASED APPETITE [None]
  - URINE OUTPUT DECREASED [None]
  - OVARIAN HYPERSTIMULATION SYNDROME [None]
  - ASCITES [None]
  - DEHYDRATION [None]
  - HYPONATRAEMIA [None]
